FAERS Safety Report 5751407-1 (Version None)
Quarter: 2008Q2

REPORT INFORMATION
  Report Type: 
  Country: None (occurrence: None)
  Receive Date: 20080528
  Receipt Date: 20080514
  Transmission Date: 20081010
  Serious: Yes (Hospitalization, Other)
  Sender: FDA-Public Use
  Company Number: CA-GENENTECH-261273

PATIENT
  Sex: Female
  Weight: 55 kg

DRUGS (3)
  1. BEVACIZUMAB [Suspect]
     Indication: OVARIAN EPITHELIAL CANCER
     Dosage: 412.5 MG, Q3W
     Route: 042
     Dates: start: 20080118
  2. CARBOPLATIN [Suspect]
     Indication: OVARIAN EPITHELIAL CANCER
     Dosage: 620 MG, UNK
     Route: 042
     Dates: start: 20080118
  3. PACLITAXEL [Suspect]
     Indication: OVARIAN EPITHELIAL CANCER
     Dosage: 223 MG, UNK
     Route: 042
     Dates: start: 20080118

REACTIONS (6)
  - BLOOD MAGNESIUM DECREASED [None]
  - FATIGUE [None]
  - HAEMOGLOBIN DECREASED [None]
  - HYPOKALAEMIA [None]
  - PERIPHERAL SENSORY NEUROPATHY [None]
  - THROMBOCYTOPENIA [None]
